FAERS Safety Report 7251114-2 (Version None)
Quarter: 2011Q1

REPORT INFORMATION
  Report Type: 
  Country: None (occurrence: None)
  Receive Date: 20110128
  Receipt Date: 20110124
  Transmission Date: 20110831
  Serious: Yes (Other)
  Sender: FDA-Public Use
  Company Number: DE-PFIZER INC-2011016114

PATIENT
  Age: 77 Year
  Sex: Female

DRUGS (1)
  1. SORTIS [Suspect]
     Dosage: UNK
     Dates: start: 20101109, end: 20110106

REACTIONS (2)
  - HAEMOGLOBIN DECREASED [None]
  - MYALGIA [None]
